FAERS Safety Report 21965823 (Version 1)
Quarter: 2023Q1

REPORT INFORMATION
  Report Type: Spontaneous
  Country: US (occurrence: US)
  Receive Date: 20230208
  Receipt Date: 20230208
  Transmission Date: 20230417
  Serious: No
  Sender: FDA-Public Use
  Company Number: US-009507513-2302USA000019

PATIENT
  Sex: Male

DRUGS (2)
  1. KEYTRUDA [Suspect]
     Active Substance: PEMBROLIZUMAB
     Dosage: UNK, EVERY 4 WEEKS
  2. INLYTA [Suspect]
     Active Substance: AXITINIB
     Dosage: UNK
     Route: 048

REACTIONS (1)
  - Product use issue [Unknown]
